FAERS Safety Report 15357172 (Version 4)
Quarter: 2024Q4

REPORT INFORMATION
  Report Type: Spontaneous
  Country: IT (occurrence: IT)
  Receive Date: 20180906
  Receipt Date: 20241114
  Transmission Date: 20250115
  Serious: Yes (Hospitalization)
  Sender: NOVARTIS
  Company Number: None

PATIENT
  Age: 82 Year
  Sex: Male

DRUGS (13)
  1. VALSARTAN [Suspect]
     Active Substance: VALSARTAN
     Indication: Hypertension
     Dosage: UNK
     Route: 048
  2. BISOPROLOL FUMARATE [Suspect]
     Active Substance: BISOPROLOL FUMARATE
     Indication: Atrial fibrillation
     Dosage: UNK
     Route: 048
  3. LASIX [Suspect]
     Active Substance: FUROSEMIDE
     Indication: Product used for unknown indication
     Dosage: 75 MG, QD
     Route: 048
  4. LASIX [Suspect]
     Active Substance: FUROSEMIDE
     Dosage: 75 MG, UNK
     Route: 048
  5. ALLOPURINOL [Concomitant]
     Active Substance: ALLOPURINOL
     Indication: Product used for unknown indication
     Dosage: 150 MG, UNK
     Route: 048
  6. ALDACTONE [Concomitant]
     Active Substance: SPIRONOLACTONE
     Indication: Product used for unknown indication
     Dosage: 25 MG, UNK
     Route: 065
  7. SPIRIVA [Concomitant]
     Active Substance: TIOTROPIUM BROMIDE MONOHYDRATE
     Indication: Product used for unknown indication
     Dosage: 18 UG, UNK
     Route: 055
  8. LYRICA [Concomitant]
     Active Substance: PREGABALIN
     Indication: Product used for unknown indication
     Dosage: 25 MG
     Route: 048
  9. DULOXETINE HYDROCHLORIDE [Concomitant]
     Active Substance: DULOXETINE HYDROCHLORIDE
     Indication: Product used for unknown indication
     Dosage: 30 MG, UNK
     Route: 048
  10. TRAZODONE HYDROCHLORIDE [Concomitant]
     Active Substance: TRAZODONE HYDROCHLORIDE
     Indication: Product used for unknown indication
     Dosage: UNK
     Route: 048
  11. MEXILETINE HYDROCHLORIDE [Concomitant]
     Active Substance: MEXILETINE HYDROCHLORIDE
     Indication: Product used for unknown indication
     Dosage: 200 MG, UNK
     Route: 048
  12. ELIQUIS [Concomitant]
     Active Substance: APIXABAN
     Indication: Product used for unknown indication
     Dosage: 10 MG
     Route: 048
  13. LANSOPRAZOLE [Concomitant]
     Active Substance: LANSOPRAZOLE
     Indication: Product used for unknown indication
     Dosage: 30 MG, UNK
     Route: 048

REACTIONS (3)
  - Hyponatraemia [Not Recovered/Not Resolved]
  - Respiratory failure [Not Recovered/Not Resolved]
  - Hyperkalaemia [Not Recovered/Not Resolved]

NARRATIVE: CASE EVENT DATE: 20180407
